FAERS Safety Report 5242421-3 (Version None)
Quarter: 2007Q1

REPORT INFORMATION
  Report Type: 
  Country: None (occurrence: None)
  Receive Date: 20070221
  Receipt Date: 20070207
  Transmission Date: 20070707
  Serious: Yes (Other)
  Sender: FDA-Public Use
  Company Number: LB-JNJFOC-20070203412

PATIENT
  Age: 49 Year
  Sex: Female

DRUGS (2)
  1. TRAMAL RAPIDE [Suspect]
     Indication: OSTEOARTHRITIS
     Route: 048
  2. PROTON PUMP INHIBITOR [Concomitant]
     Route: 065

REACTIONS (4)
  - DYSPNOEA [None]
  - HEADACHE [None]
  - NAUSEA [None]
  - RESPIRATORY DISTRESS [None]
